FAERS Safety Report 8247514-4 (Version None)
Quarter: 2012Q1

REPORT INFORMATION
  Report Type: 
  Country: None (occurrence: None)
  Receive Date: 20120330
  Receipt Date: 20120323
  Transmission Date: 20120608
  Serious: Yes (Other)
  Sender: FDA-Public Use
  Company Number: US-ABBOTT-12P-163-0918304-00

PATIENT
  Age: 39 Year
  Sex: Male

DRUGS (1)
  1. HUMIRA [Suspect]
     Indication: PSORIASIS
     Dates: start: 20120309

REACTIONS (6)
  - TOOTHACHE [None]
  - DISCOMFORT [None]
  - INFECTION [None]
  - NERVE INJURY [None]
  - PAIN [None]
  - DENTAL NECROSIS [None]
